FAERS Safety Report 10745493 (Version 1)
Quarter: 2015Q1

REPORT INFORMATION
  Report Type: Spontaneous
  Country: US (occurrence: US)
  Receive Date: 20150128
  Receipt Date: 20150128
  Transmission Date: 20150721
  Serious: No
  Sender: FDA-Public Use
  Company Number: US-009507513-1501USA009048

PATIENT
  Weight: 75.83 kg

DRUGS (1)
  1. NEXPLANON [Suspect]
     Active Substance: ETONOGESTREL
     Dosage: 1 ROD / EVERY THREE YEARS
     Route: 059
     Dates: start: 20150112

REACTIONS (2)
  - Device difficult to use [Recovered/Resolved]
  - Product quality issue [Unknown]

NARRATIVE: CASE EVENT DATE: 20150122
